FAERS Safety Report 6276461-2 (Version None)
Quarter: 2009Q3

REPORT INFORMATION
  Report Type: 
  Country: None (occurrence: None)
  Receive Date: 20090720
  Receipt Date: 20080625
  Transmission Date: 20100115
  Serious: Yes (Other)
  Sender: FDA-Public Use
  Company Number: USA-2008-0033697

PATIENT
  Age: 52 Year
  Sex: Female

DRUGS (6)
  1. MORPHINE SULFATE [Suspect]
     Indication: PAIN
     Dosage: 30 MG, Q8H, ORAL
     Route: 048
     Dates: start: 20080520, end: 20080523
  2. VICODIN [Concomitant]
  3. LOTREL /01289101/ (AMLODIPINE, BENAZEPRIL HYDROCHLORIDE) [Concomitant]
  4. POTASSIUM (POTASSIUM) [Concomitant]
  5. SINGULAIR [Concomitant]
  6. GUAIFENESIN [Concomitant]

REACTIONS (7)
  - ACCIDENTAL OVERDOSE [None]
  - DIZZINESS [None]
  - DYSARTHRIA [None]
  - LUNG DISORDER [None]
  - MOTOR DYSFUNCTION [None]
  - SOMNOLENCE [None]
  - VISION BLURRED [None]
